FAERS Safety Report 17577652 (Version 1)
Quarter: 2020Q1

REPORT INFORMATION
  Report Type: Spontaneous
  Country: HR (occurrence: HR)
  Receive Date: 20200324
  Receipt Date: 20200324
  Transmission Date: 20200409
  Serious: Yes (Hospitalization)
  Sender: FDA-Public Use
  Company Number: NVSC2020HR080442

PATIENT
  Age: 79 Year
  Sex: Male

DRUGS (5)
  1. EXFORGE HCT [Concomitant]
     Active Substance: AMLODIPINE BESYLATE\HYDROCHLOROTHIAZIDE\VALSARTAN
     Indication: PRODUCT USED FOR UNKNOWN INDICATION
     Dosage: 1 DF, QD
     Route: 048
  2. SANVAL [Concomitant]
     Active Substance: ZOLPIDEM TARTRATE
     Indication: PRODUCT USED FOR UNKNOWN INDICATION
     Dosage: 5 MG
     Route: 048
  3. KETONAL (KETOPROFEN) [Suspect]
     Active Substance: KETOPROFEN
     Indication: SCIATICA
     Dosage: 100 MG, QD
     Route: 030
     Dates: start: 20191202, end: 20191209
  4. DEXAMETHASONE. [Suspect]
     Active Substance: DEXAMETHASONE
     Indication: SCIATICA
     Dosage: 4 MG, QD
     Route: 030
     Dates: start: 20191202, end: 20191209
  5. BRUFEN [Suspect]
     Active Substance: IBUPROFEN
     Indication: SCIATICA
     Dosage: 1200 MG, QD
     Route: 048
     Dates: start: 20191207, end: 20191209

REACTIONS (8)
  - Haematemesis [Recovering/Resolving]
  - Tongue dry [Recovering/Resolving]
  - Anaemia [Recovering/Resolving]
  - Melaena [Recovering/Resolving]
  - Tongue discolouration [Recovering/Resolving]
  - Abdominal pain [Recovered/Resolved]
  - Mucosal dryness [Recovering/Resolving]
  - Pallor [Recovering/Resolving]

NARRATIVE: CASE EVENT DATE: 20191209
